FAERS Safety Report 20510624 (Version 4)
Quarter: 2022Q1

REPORT INFORMATION
  Report Type: Other
  Country: US (occurrence: None)
  Receive Date: 20220224
  Receipt Date: 20220309
  Transmission Date: 20220423
  Serious: Yes (Hospitalization, Other)
  Sender: FDA-Public Use
  Company Number: US-ROCHE-3032665

PATIENT
  Sex: Female

DRUGS (26)
  1. XOLAIR [Suspect]
     Active Substance: OMALIZUMAB
     Indication: Asthma
     Dosage: YES
     Route: 058
  2. XOLAIR [Suspect]
     Active Substance: OMALIZUMAB
     Indication: Asthma
  3. EPINEPHRINE [Concomitant]
     Active Substance: EPINEPHRINE
  4. MONTELUKAST [Concomitant]
     Active Substance: MONTELUKAST SODIUM
  5. XARELTO [Concomitant]
     Active Substance: RIVAROXABAN
  6. XOPENEX [Concomitant]
     Active Substance: LEVALBUTEROL HYDROCHLORIDE
  7. ZYRTEC (UNITED STATES) [Concomitant]
  8. ALPRAZOLAM [Concomitant]
     Active Substance: ALPRAZOLAM
  9. VITAMIN D3 [Concomitant]
     Active Substance: CHOLECALCIFEROL
  10. SPIRIVA [Concomitant]
     Active Substance: TIOTROPIUM BROMIDE MONOHYDRATE
  11. AMMONIUM LACTATE [Concomitant]
     Active Substance: AMMONIUM LACTATE
  12. BIOTIN [Concomitant]
     Active Substance: BIOTIN
  13. CARAFATE [Concomitant]
     Active Substance: SUCRALFATE
  14. FLONASE [Concomitant]
     Active Substance: FLUTICASONE PROPIONATE
  15. ESTRACE [Concomitant]
     Active Substance: ESTRADIOL
  16. CEFUROXIME AXETIL [Concomitant]
     Active Substance: CEFUROXIME AXETIL
  17. CHLORDIAZEPOXIDE;CLIDINIUM [Concomitant]
  18. LEVOTHYROXINE [Concomitant]
     Active Substance: LEVOTHYROXINE
  19. LOSARTAN POTASSIUM [Concomitant]
     Active Substance: LOSARTAN POTASSIUM
  20. METOPROLOL SUCCINATE [Concomitant]
     Active Substance: METOPROLOL SUCCINATE
  21. PANTOPRAZOLE SODIUM [Concomitant]
     Active Substance: PANTOPRAZOLE SODIUM
  22. PREMARIN [Concomitant]
     Active Substance: ESTROGENS, CONJUGATED
  23. RESTASIS [Concomitant]
     Active Substance: CYCLOSPORINE
  24. RETAINE MGD [Concomitant]
     Active Substance: LIGHT MINERAL OIL\MINERAL OIL
  25. TRIAMCINOLONE [Concomitant]
     Active Substance: TRIAMCINOLONE
  26. AMITRIPTYLINE [Concomitant]
     Active Substance: AMITRIPTYLINE

REACTIONS (14)
  - Illness [Unknown]
  - Cardiac disorder [Not Recovered/Not Resolved]
  - Cardiac ventricular disorder [Unknown]
  - Atrial fibrillation [Unknown]
  - Constipation [Unknown]
  - Hypertension [Unknown]
  - Heart rate increased [Unknown]
  - Haemoglobin decreased [Unknown]
  - Anaemia [Unknown]
  - Pallor [Unknown]
  - Dyspnoea [Unknown]
  - Memory impairment [Unknown]
  - Hypothyroidism [Unknown]
  - Impaired gastric emptying [Unknown]
